FAERS Safety Report 9437786 (Version 1)
Quarter: 2013Q3

REPORT INFORMATION
  Report Type: Spontaneous
  Country: FR (occurrence: FR)
  Receive Date: 20130802
  Receipt Date: 20130802
  Transmission Date: 20140515
  Serious: Yes (Hospitalization)
  Sender: FDA-Public Use
  Company Number: FR-B.I. PHARMACEUTICALS,INC./RIDGEFIELD-2013-FF-01947FF

PATIENT
  Age: 81 Year
  Sex: Male

DRUGS (3)
  1. PRADAXA [Suspect]
     Indication: THROMBOSIS PROPHYLAXIS
     Dosage: 220 MG
     Route: 048
     Dates: start: 201209
  2. SOTALOL [Concomitant]
     Dosage: 80 MG
  3. CRESTOR [Concomitant]
     Dosage: 5 MG

REACTIONS (1)
  - Cerebral infarction [Recovered/Resolved]
